FAERS Safety Report 10669215 (Version 1)
Quarter: 2014Q4

REPORT INFORMATION
  Report Type: Spontaneous
  Country: CA (occurrence: CA)
  Receive Date: 20141222
  Receipt Date: 20141222
  Transmission Date: 20150529
  Serious: Yes (Death, Hospitalization)
  Sender: FDA-Public Use
  Company Number: CA-MYLANLABS-2014M1015235

PATIENT

DRUGS (4)
  1. METHOTREXATE [Suspect]
     Active Substance: METHOTREXATE
     Indication: PSORIASIS
     Dosage: 0.5MG/KG PER WEEK
     Route: 065
     Dates: start: 200909
  2. RITUXIMAB [Concomitant]
     Active Substance: RITUXIMAB
     Indication: IMMUNE THROMBOCYTOPENIC PURPURA
     Dosage: 6 COURSES
     Route: 065
     Dates: start: 200907, end: 200909
  3. PREDNISONE. [Concomitant]
     Active Substance: PREDNISONE
     Indication: IMMUNE THROMBOCYTOPENIC PURPURA
     Dosage: 1 MG/KG PER DAY
     Route: 065
     Dates: start: 200905
  4. IMMUNE GLOBULIN [Concomitant]
     Active Substance: HUMAN IMMUNOGLOBULIN G
     Indication: IMMUNE THROMBOCYTOPENIC PURPURA
     Dosage: 4 COURSES
     Route: 042
     Dates: end: 200909

REACTIONS (4)
  - Sepsis [Fatal]
  - Neutropenia [Not Recovered/Not Resolved]
  - Vomiting [Unknown]
  - Septic shock [Fatal]
